FAERS Safety Report 5968786-2 (Version None)
Quarter: 2008Q4

REPORT INFORMATION
  Report Type: 
  Country: None (occurrence: None)
  Receive Date: 20081125
  Receipt Date: 20081125
  Transmission Date: 20090506
  Serious: No
  Sender: FDA-Public Use
  Company Number: None

PATIENT
  Age: 38 Year
  Sex: Female
  Weight: 95.2554 kg

DRUGS (1)
  1. MIRAPEX [Suspect]
     Indication: PARKINSON'S DISEASE
     Dosage: ONE 3 X DAILY PO
     Route: 048
     Dates: start: 20071020, end: 20080717

REACTIONS (6)
  - ABNORMAL BEHAVIOUR [None]
  - COMPULSIVE SEXUAL BEHAVIOUR [None]
  - COMPULSIVE SHOPPING [None]
  - HALLUCINATION [None]
  - JUDGEMENT IMPAIRED [None]
  - THINKING ABNORMAL [None]
